FAERS Safety Report 4885440-9 (Version None)
Quarter: 2005Q4

REPORT INFORMATION
  Report Type: 
  Country: None (occurrence: None)
  Receive Date: 20051220
  Receipt Date: 20050816
  Transmission Date: 20060501
  Serious: Yes (Death, Hospitalization)
  Sender: FDA-Public Use
  Company Number: HQWYE966917AUG05

PATIENT
  Age: 41 Year
  Sex: Female
  Weight: 95.34 kg

DRUGS (6)
  1. EFFEXOR XR [Suspect]
     Indication: DEPRESSION
     Dosage: 150 MG, ORAL; SEE IMAGE
     Route: 048
     Dates: end: 20040126
  2. EFFEXOR XR [Suspect]
     Indication: SUICIDAL IDEATION
     Dosage: 150 MG, ORAL; SEE IMAGE
     Route: 048
     Dates: end: 20040126
  3. EFFEXOR XR [Suspect]
     Indication: DEPRESSION
     Dosage: 150 MG, ORAL; SEE IMAGE
     Route: 048
     Dates: start: 20040127, end: 20040202
  4. EFFEXOR XR [Suspect]
     Indication: SUICIDAL IDEATION
     Dosage: 150 MG, ORAL; SEE IMAGE
     Route: 048
     Dates: start: 20040127, end: 20040202
  5. PROMETHAZINE [Concomitant]
  6. MIRTAZAPINE [Concomitant]

REACTIONS (3)
  - DEPRESSION [None]
  - OVERDOSE [None]
  - SUICIDAL IDEATION [None]
